FAERS Safety Report 24293746 (Version 1)
Quarter: 2024Q3

REPORT INFORMATION
  Report Type: Spontaneous
  Country: US (occurrence: None)
  Receive Date: 20240906
  Receipt Date: 20240906
  Transmission Date: 20241017
  Serious: No
  Sender: DOMPE FARMACEUTICI
  Company Number: US-FARMAPROD-202402-0673

PATIENT
  Sex: Female

DRUGS (13)
  1. OXERVATE [Suspect]
     Active Substance: CENEGERMIN-BKBJ
     Indication: Neurotrophic keratopathy
     Route: 047
     Dates: start: 20240212
  2. ESCITALOPRAM OXALATE [Concomitant]
     Active Substance: ESCITALOPRAM OXALATE
  3. NORTRIPTYLINE HYDROCHLORIDE [Concomitant]
     Active Substance: NORTRIPTYLINE HYDROCHLORIDE
  4. CLOBETASOL [Concomitant]
     Active Substance: CLOBETASOL
     Dosage: EMOLLIENT
  5. MUPIROCIN [Concomitant]
     Active Substance: MUPIROCIN
  6. COLLAGEN [Concomitant]
     Active Substance: COLLAGEN
     Dosage: 125-740MG
  7. FLAXSEED [Concomitant]
     Active Substance: FLAX SEED
  8. VITAMIN C [Concomitant]
     Active Substance: ASCORBIC ACID
  9. VITAMIN D-400 [Concomitant]
  10. VITAMIN B [Concomitant]
     Active Substance: VITAMIN B
  11. FISH OIL [Concomitant]
     Active Substance: FISH OIL
     Dosage: 100-160 MG
  12. CALCIUM [Concomitant]
     Active Substance: CALCIUM
     Dosage: 500(1250)
  13. RESTASIS [Concomitant]
     Active Substance: CYCLOSPORINE
     Dosage: DROPERETTE

REACTIONS (3)
  - Eyelid pain [Unknown]
  - Accidental overdose [Unknown]
  - Device issue [Unknown]
